FAERS Safety Report 5308522-6 (Version None)
Quarter: 2007Q2

REPORT INFORMATION
  Report Type: 
  Country: None (occurrence: None)
  Receive Date: 20070426
  Receipt Date: 20070417
  Transmission Date: 20071010
  Serious: Yes (Other)
  Sender: FDA-Public Use
  Company Number: US-AMGEN-KDL220363

PATIENT
  Sex: Female

DRUGS (1)
  1. ENBREL [Suspect]
     Indication: RHEUMATOID ARTHRITIS
     Dates: start: 20030101

REACTIONS (4)
  - BREAST DISCHARGE [None]
  - BREAST OPERATION [None]
  - LOCALISED INFECTION [None]
  - POST PROCEDURAL HAEMORRHAGE [None]
